FAERS Safety Report 25585826 (Version 2)
Quarter: 2025Q3

REPORT INFORMATION
  Report Type: Spontaneous
  Country: EU (occurrence: EU)
  Receive Date: 20250721
  Receipt Date: 20250728
  Transmission Date: 20251021
  Serious: No
  Sender: MYLAN
  Company Number: EU-MYLANLABS-2025M1059808

PATIENT
  Sex: Female

DRUGS (4)
  1. RELPAX [Suspect]
     Active Substance: ELETRIPTAN HYDROBROMIDE
     Indication: Cluster headache
  2. SUMATRIPTAN [Suspect]
     Active Substance: SUMATRIPTAN
     Indication: Cluster headache
  3. VENLAFAXINE [Suspect]
     Active Substance: VENLAFAXINE HYDROCHLORIDE
     Indication: Cluster headache
     Dosage: 150 MILLIGRAM, QD
  4. INDOMETHACIN [Concomitant]
     Active Substance: INDOMETHACIN
     Indication: Cluster headache

REACTIONS (3)
  - Medication overuse headache [Unknown]
  - Overdose [Unknown]
  - Drug ineffective [Unknown]
